FAERS Safety Report 15327112 (Version 1)
Quarter: 2018Q3

REPORT INFORMATION
  Report Type: Spontaneous
  Country: CA (occurrence: CA)
  Receive Date: 20180828
  Receipt Date: 20180828
  Transmission Date: 20181010
  Serious: Yes (Death, Life-Threatening, Hospitalization)
  Sender: FDA-Public Use
  Company Number: CA-PFIZER INC-2018343666

PATIENT
  Age: 65 Year
  Sex: Female
  Weight: 66 kg

DRUGS (25)
  1. WARFARIN [Concomitant]
     Active Substance: WARFARIN
     Dosage: UNK
  2. CARIPUL [Suspect]
     Active Substance: EPOPROSTENOL
     Indication: PULMONARY ARTERIAL HYPERTENSION
     Dosage: UNK
     Route: 042
  3. OPSUMIT [Suspect]
     Active Substance: MACITENTAN
     Indication: PULMONARY ARTERIAL HYPERTENSION
     Dosage: UNK
     Route: 048
  4. ACETAMINOPHEN AND CODEINE [Concomitant]
     Active Substance: ACETAMINOPHEN\CODEINE PHOSPHATE
     Dosage: UNK
  5. ALDACTONE [Concomitant]
     Active Substance: SPIRONOLACTONE
     Dosage: 75 MG, UNK
  6. CODEINE/CODEINE SULFATE [Concomitant]
     Dosage: UNK
  7. IRON [Concomitant]
     Active Substance: IRON
     Dosage: UNK
  8. OXYGEN. [Concomitant]
     Active Substance: OXYGEN
     Dosage: 3 L, UNK
     Route: 045
  9. SYNTHROID [Concomitant]
     Active Substance: LEVOTHYROXINE SODIUM
     Dosage: UNK
  10. VENTOLIN [Concomitant]
     Active Substance: ALBUTEROL SULFATE
     Dosage: UNK
  11. VITAMIN B12 [Concomitant]
     Active Substance: CYANOCOBALAMIN
     Dosage: UNK
  12. SILDENAFIL CITRATE. [Suspect]
     Active Substance: SILDENAFIL CITRATE
     Indication: PULMONARY ARTERIAL HYPERTENSION
     Dosage: 20 MG, 3X/DAY
     Route: 048
  13. ESOMEPRAZOLE MAGNESIUM TRIHYDRATE [Concomitant]
     Active Substance: ESOMEPRAZOLE MAGNESIUM
     Dosage: UNK
  14. GLYBURIDE. [Concomitant]
     Active Substance: GLYBURIDE
     Dosage: UNK
  15. LANTUS [Concomitant]
     Active Substance: INSULIN GLARGINE
     Dosage: UNK
  16. LASIX [Concomitant]
     Active Substance: FUROSEMIDE
     Dosage: 80 MG, UNK
  17. ROSUVASTATIN CALCIUM. [Concomitant]
     Active Substance: ROSUVASTATIN CALCIUM
     Dosage: UNK
  18. CARIPUL [Suspect]
     Active Substance: EPOPROSTENOL
     Indication: PULMONARY ARTERIAL HYPERTENSION
     Dosage: 90000.0 NG, UNK
     Route: 042
  19. CARIPUL [Suspect]
     Active Substance: EPOPROSTENOL
     Dosage: 9.0 NG, 1X/DAY
     Route: 042
  20. BIOTIN/CALCIUM PANTOTH/CYANOCOB/NICOTINAM/PYRIDOX/RIBOFLAVIN/THIAMINE [Concomitant]
     Dosage: UNK
  21. ALDACTONE [Concomitant]
     Active Substance: SPIRONOLACTONE
     Dosage: 12.5 MG, UNK
  22. FOLIC ACID. [Concomitant]
     Active Substance: FOLIC ACID
     Dosage: UNK
  23. TYLENOL [Concomitant]
     Active Substance: ACETAMINOPHEN
     Dosage: UNK
  24. NOVORAPID [Concomitant]
     Active Substance: INSULIN ASPART
     Dosage: UNK
  25. SLOW K [Concomitant]
     Active Substance: POTASSIUM CHLORIDE
     Dosage: UNK

REACTIONS (25)
  - Abdominal discomfort [Fatal]
  - Body temperature increased [Fatal]
  - Catheter site infection [Fatal]
  - Chest discomfort [Fatal]
  - Condition aggravated [Fatal]
  - Chest injury [Fatal]
  - Impaired gastric emptying [Fatal]
  - Increased bronchial secretion [Fatal]
  - Confusional state [Fatal]
  - Pallor [Fatal]
  - Arthralgia [Fatal]
  - Fall [Fatal]
  - Pneumonia [Fatal]
  - Stress [Fatal]
  - Cough [Fatal]
  - Decreased appetite [Fatal]
  - Nausea [Fatal]
  - Wrong dose [Fatal]
  - Device breakage [Fatal]
  - Device malfunction [Fatal]
  - Contusion [Fatal]
  - Malaise [Fatal]
  - Device leakage [Fatal]
  - Dyspnoea [Fatal]
  - Haemoglobin decreased [Fatal]
